FAERS Safety Report 12485553 (Version 1)
Quarter: 2016Q2

REPORT INFORMATION
  Report Type: Spontaneous
  Country: NO (occurrence: NO)
  Receive Date: 20160621
  Receipt Date: 20160621
  Transmission Date: 20160815
  Serious: Yes (Death)
  Sender: FDA-Public Use
  Company Number: NO-TEVA-667435ACC

PATIENT
  Age: 71 Year
  Sex: Female

DRUGS (1)
  1. METHOTREXATE [Suspect]
     Active Substance: METHOTREXATE
     Indication: PALINDROMIC RHEUMATISM
     Dosage: 10 MG PER WEEK THE FIRST MONTH, THEN 15 MG THE NEXT MONTH AND 20 MG SINCE 15-FEB-2016
     Route: 048
     Dates: start: 20151228, end: 20160424

REACTIONS (2)
  - Pneumonitis [Fatal]
  - Traumatic lung injury [Fatal]

NARRATIVE: CASE EVENT DATE: 20160424
